FAERS Safety Report 10539114 (Version 2)
Quarter: 2014Q4

REPORT INFORMATION
  Report Type: Spontaneous
  Country: US (occurrence: US)
  Receive Date: 20141023
  Receipt Date: 20141217
  Transmission Date: 20150529
  Serious: No
  Sender: FDA-Public Use
  Company Number: US-GILEAD-2014-0119522

PATIENT
  Age: 79 Year
  Sex: Male

DRUGS (3)
  1. LETAIRIS [Suspect]
     Active Substance: AMBRISENTAN
     Indication: PRODUCT USED FOR UNKNOWN INDICATION
     Dosage: 10 MG, QD
     Route: 065
     Dates: start: 20110909
  2. ADEMPAS [Concomitant]
     Active Substance: RIOCIGUAT
  3. TYVASO [Concomitant]
     Active Substance: TREPROSTINIL

REACTIONS (2)
  - Dyspnoea [Unknown]
  - Hypotension [Unknown]
